FAERS Safety Report 18238805 (Version 3)
Quarter: 2020Q4

REPORT INFORMATION
  Report Type: Spontaneous
  Country: DE (occurrence: DE)
  Receive Date: 20200907
  Receipt Date: 20201113
  Transmission Date: 20210113
  Serious: Yes (Hospitalization)
  Sender: FDA-Public Use
  Company Number: DE-JNJFOC-20200844114

PATIENT
  Age: 84 Year
  Sex: Female

DRUGS (5)
  1. L-THYROXIN HENNING [Concomitant]
     Active Substance: LEVOTHYROXINE SODIUM
     Dosage: 75 UG
  2. XARELTO [Suspect]
     Active Substance: RIVAROXABAN
     Indication: PULMONARY EMBOLISM
     Dosage: 15 MG, QD
     Route: 048
     Dates: start: 2016, end: 20200722
  3. TRIBENZOR [Concomitant]
     Active Substance: AMLODIPINE BESYLATE\HYDROCHLOROTHIAZIDE\OLMESARTAN MEDOXOMIL
     Dosage: 20 MG/5 MG/12.5 MG
  4. LERCANIDIPIN-HCL AL [Concomitant]
     Dosage: 10 MG
  5. ASCORBIC ACID. [Concomitant]
     Active Substance: ASCORBIC ACID
     Dosage: ONCE PER DAY

REACTIONS (9)
  - Asthenia [Recovering/Resolving]
  - Faeces discoloured [Recovering/Resolving]
  - Drug withdrawal syndrome [Unknown]
  - Blood pressure increased [Unknown]
  - Cardiovascular disorder [Unknown]
  - Melaena [Recovering/Resolving]
  - Diverticulum intestinal haemorrhagic [Recovering/Resolving]
  - Diarrhoea haemorrhagic [Recovering/Resolving]
  - Dizziness [Recovering/Resolving]

NARRATIVE: CASE EVENT DATE: 2020
